FAERS Safety Report 10053149 (Version 1)
Quarter: 2014Q2

REPORT INFORMATION
  Report Type: Spontaneous
  Country: HR (occurrence: HR)
  Receive Date: 20140402
  Receipt Date: 20140402
  Transmission Date: 20141212
  Serious: Yes (Other)
  Sender: FDA-Public Use
  Company Number: HR-TEVA-471949ISR

PATIENT
  Age: 57 Year
  Sex: Female
  Weight: 73 kg

DRUGS (3)
  1. TEGRETOL [Suspect]
     Indication: EPILEPSY
     Dosage: 800 MILLIGRAM DAILY;
     Route: 048
     Dates: start: 20131220
  2. DIAZEPAM JADRAN [Concomitant]
     Dosage: 15 MILLIGRAM DAILY;
     Route: 048
  3. ASPIRIN PROTECT [Concomitant]
     Dosage: 100 MILLIGRAM DAILY;
     Route: 048

REACTIONS (4)
  - Haematochezia [Recovering/Resolving]
  - Somnolence [Recovering/Resolving]
  - Malaise [Recovering/Resolving]
  - Weight increased [Recovering/Resolving]
